FAERS Safety Report 10426264 (Version 2)
Quarter: 2014Q3

REPORT INFORMATION
  Report Type: Report from Study
  Country: BR (occurrence: BR)
  Receive Date: 20140903
  Receipt Date: 20140903
  Transmission Date: 20150326
  Serious: Yes (Hospitalization, Other)
  Sender: FDA-Public Use
  Company Number: PHHY2013BR140895

PATIENT
  Age: 54 Year
  Sex: Female
  Weight: 105 kg

DRUGS (8)
  1. CLONAZEPAM. [Concomitant]
     Active Substance: CLONAZEPAM
     Dosage: 2 MG, UNK
     Dates: start: 2010, end: 2012
  2. GILENYA [Suspect]
     Active Substance: FINGOLIMOD HYDROCHLORIDE
     Indication: MULTIPLE SCLEROSIS
     Dosage: 1 DF, QD
     Route: 048
  3. MESALAZINE [Concomitant]
     Active Substance: MESALAMINE
     Dosage: 30 MG, UNK
  4. CITALOPRAM [Concomitant]
     Active Substance: CITALOPRAM HYDROBROMIDE
     Dosage: 3 DF, UNK
     Dates: start: 2010
  5. RIVOTRIL [Concomitant]
     Active Substance: CLONAZEPAM
     Dosage: 2 MG, UNK
     Dates: start: 201212
  6. MIRTAZAPINE. [Concomitant]
     Active Substance: MIRTAZAPINE
     Dates: start: 2010
  7. GILENYA [Suspect]
     Active Substance: FINGOLIMOD HYDROCHLORIDE
     Dosage: 2 DF, QD
     Route: 048
  8. QUETIAPINE [Concomitant]
     Active Substance: QUETIAPINE
     Dosage: 3 DF, UNK
     Dates: start: 2010

REACTIONS (20)
  - Tremor [Not Recovered/Not Resolved]
  - Insomnia [Not Recovered/Not Resolved]
  - Head discomfort [Unknown]
  - Fall [Not Recovered/Not Resolved]
  - Drug administration error [Unknown]
  - Fatigue [Not Recovered/Not Resolved]
  - Movement disorder [Unknown]
  - Muscular weakness [Not Recovered/Not Resolved]
  - Constipation [Not Recovered/Not Resolved]
  - Back pain [Not Recovered/Not Resolved]
  - Balance disorder [Not Recovered/Not Resolved]
  - Myalgia [Unknown]
  - Overdose [Unknown]
  - Malaise [Not Recovered/Not Resolved]
  - Gait disturbance [Unknown]
  - Leukopenia [Unknown]
  - Depression [Not Recovered/Not Resolved]
  - Dizziness [Not Recovered/Not Resolved]
  - Weight increased [Unknown]
  - Central nervous system lesion [Unknown]

NARRATIVE: CASE EVENT DATE: 20140825
